FAERS Safety Report 5568327-8 (Version None)
Quarter: 2007Q4

REPORT INFORMATION
  Report Type: 
  Country: None (occurrence: None)
  Receive Date: 20071130
  Receipt Date: 20070808
  Transmission Date: 20080405
  Serious: Yes (Other)
  Sender: FDA-Public Use
  Company Number: WAES 0605USA03990

PATIENT
  Age: 75 Year
  Sex: Female

DRUGS (6)
  1. FOSAMAX [Suspect]
     Indication: OSTEOPOROSIS
     Dosage: 70 MG/WKY/PO
     Route: 048
     Dates: start: 20020301, end: 20050401
  2. CALTRATE [Concomitant]
  3. MAXZIDE [Concomitant]
  4. PRAVACHOL [Concomitant]
  5. ASPIRIN [Concomitant]
  6. POTASSIUM CHLORIDE [Concomitant]

REACTIONS (1)
  - OSTEOMYELITIS [None]
